FAERS Safety Report 7232774-9 (Version None)
Quarter: 2011Q1

REPORT INFORMATION
  Report Type: 
  Country: None (occurrence: None)
  Receive Date: 20110107
  Receipt Date: 20101224
  Transmission Date: 20110831
  Serious: Yes (Hospitalization)
  Sender: FDA-Public Use
  Company Number: 2010005610

PATIENT
  Age: 73 Year
  Sex: Male
  Weight: 75.2971 kg

DRUGS (29)
  1. OPTIVE [Concomitant]
  2. VITAMIN E [Concomitant]
  3. CLINDAMYCIN [Concomitant]
  4. PROCOR (AMIODARONE HYDROCHLORIDE) [Concomitant]
  5. CP-751,871 [Suspect]
     Indication: NON-SMALL CELL LUNG CANCER
     Dosage: 780 MG, CYCLIC, EVERY 3 WEEKS, INTRAVENOUS
     Route: 042
     Dates: start: 20090709
  6. NASALCROM [Concomitant]
  7. BAG BALM [Concomitant]
  8. SENNA (SENNA) [Concomitant]
  9. FOLIC ACID [Concomitant]
  10. ERLOTINIB HYDROCHLORIDE [Suspect]
     Indication: NON-SMALL CELL LUNG CANCER
     Dosage: 150 MG, 1X/DAY, ORAL
     Route: 048
     Dates: start: 20090709
  11. LISINOPRIL [Concomitant]
  12. SODIUM CHLORIDE [Concomitant]
  13. ALPRAZOLAM [Concomitant]
  14. MYLANTA (MYLANTA) [Concomitant]
  15. SYSTANE [Concomitant]
  16. ZOLOFT [Concomitant]
  17. NEXIUM [Concomitant]
  18. PROZAC [Concomitant]
  19. NEOSPORIN TOPICAL OINTMENT (NEOSPORIN POWDER) [Concomitant]
  20. MINOCYCLINE HCL [Concomitant]
  21. KAOPECTATE (KAOPECTATE) [Concomitant]
  22. IRON (IRON) [Concomitant]
  23. CHLORHEXIDINE GLUCONATE [Concomitant]
  24. BIOTIN (BIOTIN) [Concomitant]
  25. BENADRYL [Concomitant]
  26. LOPERAMIDE [Concomitant]
  27. IPRATROPIUM BROMIDE AND ALBUTEROL SULFATE [Concomitant]
  28. PROCHLORPERAZINE MALEATE [Concomitant]
  29. POVIDONE-IODINE (PROVIDONE-IODINE) [Concomitant]

REACTIONS (24)
  - FUNGAL INFECTION [None]
  - RHINITIS [None]
  - JOINT RANGE OF MOTION DECREASED [None]
  - DYSPEPSIA [None]
  - DEPRESSION [None]
  - HYPERTENSION [None]
  - STAPHYLOCOCCAL BACTERAEMIA [None]
  - VERTIGO POSITIONAL [None]
  - DYSURIA [None]
  - DIZZINESS [None]
  - WEIGHT DECREASED [None]
  - EXCORIATION [None]
  - DRY SKIN [None]
  - GAIT DISTURBANCE [None]
  - SKIN DISORDER [None]
  - ANAEMIA [None]
  - NAUSEA [None]
  - BLOOD GLUCOSE INCREASED [None]
  - PNEUMONIA [None]
  - CONSTIPATION [None]
  - EPISTAXIS [None]
  - GAMMA-GLUTAMYLTRANSFERASE INCREASED [None]
  - UPPER RESPIRATORY TRACT INFECTION [None]
  - DECREASED APPETITE [None]
